FAERS Safety Report 18543979 (Version 4)
Quarter: 2023Q4

REPORT INFORMATION
  Report Type: Report from Study
  Country: US (occurrence: US)
  Receive Date: 20201125
  Receipt Date: 20231205
  Transmission Date: 20240110
  Serious: No
  Sender: FDA-Public Use
  Company Number: US-KYOWAKIRIN-2020BKK020151

PATIENT

DRUGS (8)
  1. CRYSVITA [Suspect]
     Active Substance: BUROSUMAB-TWZA
     Indication: Hereditary hypophosphataemic rickets
     Dosage: 60 MG, 1X/4 WEEKS
     Route: 058
     Dates: start: 20180917
  2. CRYSVITA [Suspect]
     Active Substance: BUROSUMAB-TWZA
     Dosage: 60 MG, 1X/4 WEEKS
     Route: 058
     Dates: start: 20180921
  3. CRYSVITA [Suspect]
     Active Substance: BUROSUMAB-TWZA
     Dosage: 60 MG, 1X/4 WEEKS (EVERY 28 DAYS)
     Route: 058
  4. CRYSVITA [Suspect]
     Active Substance: BUROSUMAB-TWZA
     Dosage: 60 MG, 1X/4 WEEKS
     Route: 058
  5. CRYSVITA [Suspect]
     Active Substance: BUROSUMAB-TWZA
     Dosage: 60 MG, 1X/4 WEEKS
     Route: 058
     Dates: start: 20221128
  6. CRYSVITA [Concomitant]
     Active Substance: BUROSUMAB-TWZA
     Indication: Product used for unknown indication
     Dosage: UNK
     Route: 065
  7. BIKTARVY [Concomitant]
     Active Substance: BICTEGRAVIR SODIUM\EMTRICITABINE\TENOFOVIR ALAFENAMIDE FUMARATE
     Indication: Product used for unknown indication
     Dosage: UNK
     Route: 065
  8. ASPIRIN [Concomitant]
     Active Substance: ASPIRIN
     Indication: Product used for unknown indication
     Dosage: UNK
     Route: 065

REACTIONS (3)
  - Blood phosphorus decreased [Not Recovered/Not Resolved]
  - Blood 1,25-dihydroxycholecalciferol decreased [Unknown]
  - Blood alkaline phosphatase increased [Unknown]

NARRATIVE: CASE EVENT DATE: 20191015
